FAERS Safety Report 19062767 (Version 1)
Quarter: 2021Q1

REPORT INFORMATION
  Report Type: Spontaneous
  Country: PL (occurrence: PL)
  Receive Date: 20210326
  Receipt Date: 20210326
  Transmission Date: 20210420
  Serious: Yes (Death, Hospitalization)
  Sender: FDA-Public Use
  Company Number: PL-ROCHE-2794289

PATIENT
  Age: 69 Year
  Sex: Female
  Weight: 40 kg

DRUGS (9)
  1. FLUCONAZOLE. [Concomitant]
     Active Substance: FLUCONAZOLE
     Indication: FUNGAL INFECTION
     Route: 042
     Dates: start: 20210215, end: 20210219
  2. BISEPTOL [Concomitant]
     Active Substance: SULFAMETHOXAZOLE\TRIMETHOPRIM
     Indication: PROPHYLAXIS
     Route: 042
     Dates: start: 20210215, end: 20210219
  3. DEXAMETHASONE. [Concomitant]
     Active Substance: DEXAMETHASONE
     Indication: RESPIRATORY FAILURE
     Route: 042
     Dates: start: 20210215, end: 20210219
  4. FUROSEMIDE. [Concomitant]
     Active Substance: FUROSEMIDE
     Indication: CIRCULATORY COLLAPSE
     Route: 042
     Dates: start: 20210215, end: 20210219
  5. CIPROFLOXACIN. [Concomitant]
     Active Substance: CIPROFLOXACIN
     Indication: PNEUMONIA
     Route: 042
     Dates: start: 20210215, end: 20210219
  6. CEFTAZIDIME. [Concomitant]
     Active Substance: CEFTAZIDIME
     Indication: PNEUMONIA
     Route: 042
     Dates: start: 20210215, end: 20210219
  7. HEVIRAN [Concomitant]
     Active Substance: ACYCLOVIR
     Indication: PROPHYLAXIS
     Route: 048
     Dates: start: 20210215, end: 20210219
  8. RITUXIMAB. [Suspect]
     Active Substance: RITUXIMAB
     Indication: CHRONIC LYMPHOCYTIC LEUKAEMIA
     Route: 041
     Dates: start: 20210118, end: 20210118
  9. VENCLYXTO [Suspect]
     Active Substance: VENETOCLAX
     Indication: CHRONIC LYMPHOCYTIC LEUKAEMIA
     Route: 048
     Dates: start: 20201209

REACTIONS (4)
  - Respiratory failure [Fatal]
  - Chronic lymphocytic leukaemia transformation [Fatal]
  - Weight decreased [Fatal]
  - Infection [Fatal]

NARRATIVE: CASE EVENT DATE: 20210125
